FAERS Safety Report 8493537-X (Version None)
Quarter: 2012Q3

REPORT INFORMATION
  Report Type: 
  Country: None (occurrence: None)
  Receive Date: 20120706
  Receipt Date: 20120627
  Transmission Date: 20120928
  Serious: Yes (Hospitalization)
  Sender: FDA-Public Use
  Company Number: CN-ASTRAZENECA-2012SE33868

PATIENT
  Age: 24 Year
  Sex: Male

DRUGS (1)
  1. NEXIUM [Suspect]
     Indication: GASTRIC DISORDER
     Route: 048
     Dates: start: 20120412

REACTIONS (1)
  - DRUG-INDUCED LIVER INJURY [None]
